FAERS Safety Report 24426289 (Version 1)
Quarter: 2024Q4

REPORT INFORMATION
  Report Type: Other
  Country: CN (occurrence: CN)
  Receive Date: 20241011
  Receipt Date: 20241011
  Transmission Date: 20250114
  Serious: Yes (Death, Hospitalization)
  Sender: BIONPHARMA
  Company Number: CN-Bion-014032

PATIENT
  Age: 25 Day
  Sex: Female

DRUGS (2)
  1. DEXAMETHASONE [Suspect]
     Active Substance: DEXAMETHASONE
     Indication: Inflammation
  2. EPINEPHRINE [Concomitant]
     Active Substance: EPINEPHRINE
     Indication: Hypotension

REACTIONS (1)
  - Drug ineffective [Fatal]
